FAERS Safety Report 5917078-6 (Version None)
Quarter: 2008Q4

REPORT INFORMATION
  Report Type: 
  Country: None (occurrence: None)
  Receive Date: 20081014
  Receipt Date: 20081003
  Transmission Date: 20090506
  Serious: Yes (Hospitalization, Other)
  Sender: FDA-Public Use
  Company Number: JP-JNJFOC-20081002285

PATIENT
  Age: 31 Year
  Sex: Female

DRUGS (9)
  1. RISPERDAL [Suspect]
     Route: 065
  2. RISPERDAL [Suspect]
     Route: 065
  3. RISPERDAL [Suspect]
     Route: 065
  4. RISPERDAL [Suspect]
     Indication: DRUG USE FOR UNKNOWN INDICATION
     Route: 065
  5. CARBAMAZEPINE [Suspect]
     Route: 048
  6. CARBAMAZEPINE [Suspect]
     Indication: DRUG USE FOR UNKNOWN INDICATION
     Route: 048
  7. ZONEGRAN [Suspect]
     Route: 065
  8. ZONEGRAN [Suspect]
     Indication: DRUG USE FOR UNKNOWN INDICATION
     Route: 065
  9. ACETAZOLAMIDE [Suspect]
     Indication: DRUG USE FOR UNKNOWN INDICATION
     Route: 065

REACTIONS (6)
  - DELUSION [None]
  - HYPOKINESIA [None]
  - METABOLIC ENCEPHALOPATHY [None]
  - SOMATIC HALLUCINATION [None]
  - SOMNOLENCE [None]
  - SPEECH DISORDER [None]
